FAERS Safety Report 6357268-4 (Version None)
Quarter: 2009Q3

REPORT INFORMATION
  Report Type: 
  Country: None (occurrence: None)
  Receive Date: 20090916
  Receipt Date: 20090903
  Transmission Date: 20100115
  Serious: Yes (Other)
  Sender: FDA-Public Use
  Company Number: PHHY2009BR38398

PATIENT
  Sex: Female

DRUGS (1)
  1. ENABLEX [Suspect]
     Dosage: UNK
     Route: 048

REACTIONS (7)
  - DECREASED APPETITE [None]
  - EYE SWELLING [None]
  - GENITAL RASH [None]
  - HEADACHE [None]
  - MALAISE [None]
  - NAUSEA [None]
  - RASH [None]
